FAERS Safety Report 4411253-8 (Version None)
Quarter: 2004Q3

REPORT INFORMATION
  Report Type: 
  Country: None (occurrence: None)
  Receive Date: 20040727
  Receipt Date: 20040714
  Transmission Date: 20050211
  Serious: No
  Sender: FDA-Public Use
  Company Number: 04H-056-0267279-00

PATIENT
  Age: 62 Year
  Sex: Male

DRUGS (2)
  1. HEPARIN SODIUM [Suspect]
     Indication: ANTICOAGULANT THERAPY
     Dosage: IMMEDIATELY POST-OP
  2. HEPARIN CALCIUM [Suspect]
     Indication: ANTICOAGULANT THERAPY
     Dosage: 0.3 ML, ONCE IMMEDIATELY POSTOP

REACTIONS (8)
  - AORTIC THROMBOSIS [None]
  - GENERAL PHYSICAL CONDITION ABNORMAL [None]
  - HEPARIN-INDUCED THROMBOCYTOPENIA [None]
  - HYPERTHERMIA [None]
  - INFLAMMATION [None]
  - LEUKOCYTOSIS [None]
  - MEDICAL DEVICE COMPLICATION [None]
  - POST PROCEDURAL COMPLICATION [None]
